FAERS Safety Report 13034585 (Version 1)
Quarter: 2016Q4

REPORT INFORMATION
  Report Type: Spontaneous
  Country: US (occurrence: US)
  Receive Date: 20161216
  Receipt Date: 20161216
  Transmission Date: 20170207
  Serious: No
  Sender: FDA-Public Use
  Company Number: None

PATIENT
  Age: 46 Year
  Sex: Male

DRUGS (1)
  1. COSENTYX [Suspect]
     Active Substance: SECUKINUMAB
     Dosage: 150GM 300MG WEEK SQ
     Route: 058
     Dates: start: 20161101

REACTIONS (2)
  - Abdominal discomfort [None]
  - Gastrointestinal pain [None]

NARRATIVE: CASE EVENT DATE: 20161215
